FAERS Safety Report 22362295 (Version 1)
Quarter: 2023Q2

REPORT INFORMATION
  Report Type: Spontaneous
  Country: CN (occurrence: CN)
  Receive Date: 20230524
  Receipt Date: 20230524
  Transmission Date: 20230722
  Serious: Yes (Other)
  Sender: FDA-Public Use
  Company Number: CN-PFIZER INC-PV202300090386

PATIENT
  Age: 84 Year
  Sex: Male
  Weight: 62 kg

DRUGS (3)
  1. NIRMATRELVIR\RITONAVIR [Suspect]
     Active Substance: NIRMATRELVIR\RITONAVIR
     Indication: Coronavirus infection
     Dosage: 250 MG, 2X/DAY
     Route: 048
     Dates: start: 20230503, end: 20230508
  2. MOXIFLOXACIN HYDROCHLORIDE [Suspect]
     Active Substance: MOXIFLOXACIN HYDROCHLORIDE
     Indication: Bacterial infection
     Dosage: 0.4 G, 1X/DAY
     Route: 041
     Dates: start: 20230503, end: 20230508
  3. HERBALS\MENTHOL [Suspect]
     Active Substance: HERBALS\MENTHOL
     Indication: Coronavirus infection
     Dosage: 6 G, 3X/DAY
     Route: 048
     Dates: start: 20230503, end: 20230509

REACTIONS (5)
  - Cerebral infarction [Unknown]
  - Neurodegenerative disorder [Unknown]
  - Tremor [Unknown]
  - Hypertonia [Unknown]
  - Sinusitis [Unknown]

NARRATIVE: CASE EVENT DATE: 20230507
